FAERS Safety Report 22121984 (Version 1)
Quarter: 2023Q1

REPORT INFORMATION
  Report Type: Spontaneous
  Country: GB (occurrence: GB)
  Receive Date: 20230321
  Receipt Date: 20230321
  Transmission Date: 20230418
  Serious: Yes (Death)
  Sender: FDA-Public Use
  Company Number: GB-MHRA-MED-202303101732172830-BRLPJ

PATIENT
  Sex: Female

DRUGS (1)
  1. IMATINIB MESYLATE [Suspect]
     Active Substance: IMATINIB MESYLATE
     Indication: Product used for unknown indication
     Dosage: 100MG, DOSE REDUCED FROM 400MG TO 300MG
     Route: 065

REACTIONS (4)
  - Eye irritation [Fatal]
  - Dry eye [Unknown]
  - Oedema [Unknown]
  - Asthenia [Unknown]
